FAERS Safety Report 8557641-X (Version None)
Quarter: 2012Q3

REPORT INFORMATION
  Report Type: 
  Country: None (occurrence: None)
  Receive Date: 20120801
  Receipt Date: 20120726
  Transmission Date: 20120928
  Serious: Yes (Hospitalization, Other)
  Sender: FDA-Public Use
  Company Number: US-ALEXION-A201200347

PATIENT
  Sex: Female
  Weight: 72.5 kg

DRUGS (22)
  1. LOVENOX [Concomitant]
     Indication: DEEP VEIN THROMBOSIS
     Dosage: 100 MG, QD
     Route: 058
  2. COLACE [Concomitant]
     Dosage: UNK
  3. PAXIL [Concomitant]
     Dosage: UNK
     Route: 048
  4. ASPIRIN [Concomitant]
     Indication: CORONARY ARTERY DISEASE
     Dosage: UNK
     Route: 048
  5. ARANESP [Concomitant]
     Indication: ANAEMIA
     Dosage: 200 MG, Q 2 WEEKS
     Route: 060
  6. DESFERAL [Concomitant]
     Indication: IRON OVERLOAD
     Dosage: UNK
     Route: 048
  7. TRAMADOL HYDROCHLORIDE [Concomitant]
     Indication: PAIN
     Dosage: 50 MG, TID
     Route: 060
  8. ALBUTEROL [Concomitant]
     Indication: ASTHMA
     Dosage: UNK
     Route: 055
  9. SOLIRIS [Suspect]
     Indication: PAROXYSMAL NOCTURNAL HAEMOGLOBINURIA
     Dosage: 900 MG, QW
     Route: 042
     Dates: start: 20080519
  10. SOLIRIS [Suspect]
     Dosage: 600 MG, Q2W
     Route: 042
     Dates: start: 20081113
  11. DILAUDID [Concomitant]
     Indication: PAIN
     Dosage: 4 MG, Q 4 HRS PRN
     Route: 048
  12. MULTI-VITAMIN [Concomitant]
     Dosage: UNK
     Route: 048
  13. PHENERGAN HCL [Concomitant]
     Indication: NAUSEA
     Dosage: UNK
     Route: 030
  14. ADVAIR [Concomitant]
     Indication: ASTHMA
     Dosage: UNK
     Route: 055
  15. FOLIC ACID [Concomitant]
     Indication: FOLATE DEFICIENCY
     Dosage: UNK
     Route: 048
  16. RESTORIL [Concomitant]
     Indication: SLEEP DISORDER
     Dosage: UNK
     Route: 048
  17. LOVENOX [Concomitant]
     Dosage: 80 MG, BID
     Route: 058
  18. BENADRYL [Concomitant]
     Dosage: UNK
     Route: 048
  19. SPIRIVA [Concomitant]
     Indication: ASTHMA
     Dosage: UNK
     Route: 055
  20. VANCOMYCIN HCL [Concomitant]
     Dosage: UNK
     Route: 048
  21. SYMBICORT [Concomitant]
     Indication: ASTHMA
     Dosage: 80-4.5 MCG, UNK
  22. SOLIRIS [Suspect]
     Dosage: 900 MG, Q2W
     Route: 042
     Dates: start: 20090325

REACTIONS (7)
  - MUSCULOSKELETAL PAIN [None]
  - INSOMNIA [None]
  - PNEUMONIA [None]
  - BACTERAEMIA [None]
  - CONTUSION [None]
  - DEVICE RELATED INFECTION [None]
  - SERUM FERRITIN INCREASED [None]
